FAERS Safety Report 25718941 (Version 1)
Quarter: 2025Q3

REPORT INFORMATION
  Report Type: Spontaneous
  Country: US (occurrence: US)
  Receive Date: 20250823
  Receipt Date: 20250823
  Transmission Date: 20251020
  Serious: Yes (Hospitalization)
  Sender: AMGEN
  Company Number: US-AMGEN-USASP2025164064

PATIENT
  Age: 21 Month
  Sex: Female

DRUGS (1)
  1. RITUXIMAB [Suspect]
     Active Substance: RITUXIMAB
     Indication: Lymphoproliferative disorder
     Route: 065

REACTIONS (4)
  - Metabolic acidosis [Unknown]
  - Tachycardia [Unknown]
  - Hyperlactacidaemia [Recovered/Resolved]
  - Off label use [Unknown]
